FAERS Safety Report 4705361-1 (Version None)
Quarter: 2005Q3

REPORT INFORMATION
  Report Type: 
  Country: None (occurrence: None)
  Receive Date: 20050701
  Receipt Date: 20050311
  Transmission Date: 20060218
  Serious: Yes (Death)
  Sender: FDA-Public Use
  Company Number: GB-JNJFOC-20040801249

PATIENT
  Sex: Male

DRUGS (4)
  1. TOPAMAX [Suspect]
     Indication: DRUG USE FOR UNKNOWN INDICATION
     Route: 049
  2. AMITRIPTALINE [Concomitant]
     Dosage: STARTED PRIOR TO 1995
     Route: 065
  3. DIHYDROCODEINE [Concomitant]
     Route: 065
  4. ZOPICLONE [Concomitant]
     Route: 065

REACTIONS (2)
  - BRONCHIECTASIS [None]
  - LUNG ABSCESS [None]
